FAERS Safety Report 25521839 (Version 2)
Quarter: 2025Q4

REPORT INFORMATION
  Report Type: Spontaneous
  Country: JP (occurrence: JP)
  Receive Date: 20250706
  Receipt Date: 20251023
  Transmission Date: 20260117
  Serious: Yes (Death, Other)
  Sender: MERCK SHARP & DOHME LLC
  Company Number: JP-009507513-2301521

PATIENT
  Age: 8 Decade
  Sex: Female

DRUGS (2)
  1. KEYTRUDA [Suspect]
     Active Substance: PEMBROLIZUMAB
     Indication: Transitional cell carcinoma metastatic
  2. ENFORTUMAB VEDOTIN [Suspect]
     Active Substance: ENFORTUMAB VEDOTIN
     Indication: Transitional cell carcinoma metastatic

REACTIONS (9)
  - Malignant neoplasm progression [Fatal]
  - Vomiting [Unknown]
  - Neuropathy peripheral [Unknown]
  - Immune-mediated enterocolitis [Unknown]
  - Nausea [Unknown]
  - Taste disorder [Unknown]
  - Stomatitis [Unknown]
  - Skin disorder [Unknown]
  - Therapy partial responder [Unknown]
